FAERS Safety Report 12450827 (Version 1)
Quarter: 2016Q2

REPORT INFORMATION
  Report Type: Spontaneous
  Country: US (occurrence: None)
  Receive Date: 20160608
  Receipt Date: 20160608
  Transmission Date: 20160815
  Serious: Yes (Life-Threatening, Hospitalization)
  Sender: FDA-Public Use
  Company Number: None

PATIENT
  Age: 41 Year
  Sex: Male
  Weight: 89 kg

DRUGS (1)
  1. LOPERAMIDE [Suspect]
     Active Substance: LOPERAMIDE
     Indication: OFF LABEL USE
     Route: 048

REACTIONS (4)
  - Cardio-respiratory arrest [None]
  - Electrocardiogram QT prolonged [None]
  - Torsade de pointes [None]
  - Intentional overdose [None]

NARRATIVE: CASE EVENT DATE: 20160430
